FAERS Safety Report 16199669 (Version 2)
Quarter: 2020Q4

REPORT INFORMATION
  Report Type: Spontaneous
  Country: US (occurrence: US)
  Receive Date: 20190415
  Receipt Date: 20201015
  Transmission Date: 20210113
  Serious: Yes (Other)
  Sender: FDA-Public Use
  Company Number: US-ASTRAZENECA-2019SE09688

PATIENT
  Age: 26656 Day
  Sex: Female
  Weight: 74.4 kg

DRUGS (26)
  1. PREVACID [Suspect]
     Active Substance: LANSOPRAZOLE
     Route: 065
     Dates: start: 2004
  2. ACIPHEX [Concomitant]
     Active Substance: RABEPRAZOLE SODIUM
  3. VITAMIN E [Concomitant]
     Active Substance: .ALPHA.-TOCOPHEROL
  4. BETA CAROTENE. [Concomitant]
     Active Substance: BETA CAROTENE
  5. PREVACID [Suspect]
     Active Substance: LANSOPRAZOLE
     Dosage: FOR MULTIPLE AND VARIOUS YEARS
     Route: 065
  6. FIORICET [Concomitant]
     Active Substance: ACETAMINOPHEN\BUTALBITAL\CAFFEINE
  7. TRETINOIN. [Concomitant]
     Active Substance: TRETINOIN
  8. PROCRIT [Concomitant]
     Active Substance: ERYTHROPOIETIN
  9. CAPTOPRIL. [Concomitant]
     Active Substance: CAPTOPRIL
  10. NEXIUM [Suspect]
     Active Substance: ESOMEPRAZOLE MAGNESIUM
     Dosage: FOR MULTIPLE AND VARIOUS YEARS
     Route: 048
  11. PENICILLIN [Concomitant]
     Active Substance: PENICILLIN
  12. VITAMIN D [Concomitant]
     Active Substance: VITAMIN D NOS
  13. COENZYME Q10 [Concomitant]
     Active Substance: DIETARY SUPPLEMENT\UBIDECARENONE
  14. ROCALTROL [Concomitant]
     Active Substance: CALCITRIOL
  15. KEFLEX [Concomitant]
     Active Substance: CEPHALEXIN
  16. MAGOX [Concomitant]
  17. NEXIUM [Suspect]
     Active Substance: ESOMEPRAZOLE MAGNESIUM
     Route: 048
     Dates: start: 2004, end: 2010
  18. CODEINE [Concomitant]
     Active Substance: CODEINE
  19. SULFA [Concomitant]
     Active Substance: UNSPECIFIED INGREDIENT
  20. METOPROLOL TARTRATE. [Concomitant]
     Active Substance: METOPROLOL TARTRATE
  21. TUMS [Concomitant]
     Active Substance: CALCIUM CARBONATE
  22. EXCEDRIN [Concomitant]
     Active Substance: ACETAMINOPHEN\ASPIRIN\CAFFEINE
  23. OMEPRAZOLE. [Concomitant]
     Active Substance: OMEPRAZOLE
  24. FISH OIL [Concomitant]
     Active Substance: FISH OIL
  25. CYCLOBENZAPRINE. [Concomitant]
     Active Substance: CYCLOBENZAPRINE
  26. FEXOFENADINE [Concomitant]
     Active Substance: FEXOFENADINE HYDROCHLORIDE

REACTIONS (5)
  - Renal injury [Unknown]
  - Nephropathy [Unknown]
  - Rebound acid hypersecretion [Unknown]
  - Renal failure [Unknown]
  - Chronic kidney disease [Unknown]

NARRATIVE: CASE EVENT DATE: 20110322
